FAERS Safety Report 14828863 (Version 4)
Quarter: 2018Q3

REPORT INFORMATION
  Report Type: Report from Study
  Country: DE (occurrence: DE)
  Receive Date: 20180430
  Receipt Date: 20180829
  Transmission Date: 20181010
  Serious: Yes (Hospitalization, Other)
  Sender: FDA-Public Use
  Company Number: DE-EISAI MEDICAL RESEARCH-EC-2018-037257

PATIENT
  Age: 17 Year
  Sex: Female

DRUGS (10)
  1. LENVATINIB [Suspect]
     Active Substance: LENVATINIB
     Indication: OSTEOSARCOMA
     Route: 048
     Dates: start: 20171122, end: 20180215
  2. CLEXANE [Concomitant]
     Active Substance: ENOXAPARIN SODIUM
  3. LENVATINIB [Suspect]
     Active Substance: LENVATINIB
     Route: 048
     Dates: start: 20180801, end: 20180807
  4. BEPANTHEM [Concomitant]
  5. VIMOVO [Concomitant]
     Active Substance: ESOMEPRAZOLE MAGNESIUM\NAPROXEN
  6. L?THYROXIN [Concomitant]
     Active Substance: LEVOTHYROXINE SODIUM
  7. MEDIGEL [Concomitant]
  8. LENVATINIB [Suspect]
     Active Substance: LENVATINIB
     Route: 048
     Dates: start: 20180309, end: 20180424
  9. LENVATINIB [Suspect]
     Active Substance: LENVATINIB
     Route: 048
     Dates: start: 20180509, end: 20180731
  10. PALLADON [Concomitant]
     Active Substance: HYDROMORPHONE

REACTIONS (2)
  - Pathological fracture [Recovered/Resolved with Sequelae]
  - Wound dehiscence [Unknown]

NARRATIVE: CASE EVENT DATE: 20180110
